FAERS Safety Report 7988935-4 (Version None)
Quarter: 2011Q4

REPORT INFORMATION
  Report Type: 
  Country: None (occurrence: None)
  Receive Date: 20111007
  Receipt Date: 20110816
  Transmission Date: 20120403
  Serious: No
  Sender: FDA-Public Use
  Company Number: 2011HGS-002434

PATIENT
  Age: 49 Year
  Sex: Female
  Weight: 65 kg

DRUGS (4)
  1. BENLYSTA [Suspect]
  2. CYTOMEL [Concomitant]
  3. BENLYSTA [Suspect]
     Indication: SYSTEMIC LUPUS ERYTHEMATOSUS
     Dosage: 10 MG/KG, 1 IN 14 D
     Dates: start: 20110715
  4. CELLCEPT [Concomitant]

REACTIONS (3)
  - DYSPEPSIA [None]
  - NAUSEA [None]
  - HEADACHE [None]
